FAERS Safety Report 10336468 (Version 1)
Quarter: 2014Q3

REPORT INFORMATION
  Report Type: Spontaneous
  Country: US (occurrence: US)
  Receive Date: 20140723
  Receipt Date: 20140723
  Transmission Date: 20150326
  Serious: No
  Sender: FDA-Public Use
  Company Number: US-BRISTOL-MYERS SQUIBB COMPANY-20677613

PATIENT
  Age: 76 Year
  Sex: Female
  Weight: 90.7 kg

DRUGS (12)
  1. TRIAMTERENE + HCTZ [Concomitant]
     Dosage: 1DF = 37.5/25MG
  2. CALCIUM [Concomitant]
     Active Substance: CALCIUM
  3. DOCOSAHEXAENOIC ACID [Concomitant]
  4. COUMADIN [Suspect]
     Active Substance: WARFARIN SODIUM
     Dosage: 2.5MG,5 DAY/WEEK?2MG,2 DAY/WK
     Dates: start: 1999
  5. VITAMIN D [Concomitant]
     Active Substance: CHOLECALCIFEROL
  6. LISINOPRIL. [Concomitant]
     Active Substance: LISINOPRIL
  7. METFORMIN [Concomitant]
     Active Substance: METFORMIN HYDROCHLORIDE
  8. MAGNESIUM [Concomitant]
     Active Substance: MAGNESIUM
  9. VITAMIN C [Concomitant]
     Active Substance: ASCORBIC ACID
  10. B COMPLEX 100 [Concomitant]
     Dosage: SUPER B COMPLEX
  11. VYTORIN 10/20 [Concomitant]
     Dosage: 1DF = 10/20MG
  12. CHLOR-TRIMETON [Concomitant]
     Active Substance: CHLORPHENIRAMINE MALEATE
     Dosage: 1-2 TIMES DAILY

REACTIONS (1)
  - Bleeding time shortened [Unknown]
